FAERS Safety Report 7957662-1 (Version None)
Quarter: 2011Q4

REPORT INFORMATION
  Report Type: 
  Country: None (occurrence: None)
  Receive Date: 20111205
  Receipt Date: 20111122
  Transmission Date: 20120403
  Serious: Yes (Hospitalization, Other)
  Sender: FDA-Public Use
  Company Number: PHHY2010US40235

PATIENT
  Sex: Male
  Weight: 83.4 kg

DRUGS (7)
  1. BLOOD CELLS, PACKED HUMAN [Concomitant]
  2. EXJADE [Suspect]
     Indication: MYELODYSPLASTIC SYNDROME
     Dosage: 1000 MG, QD
     Route: 048
     Dates: start: 20100611
  3. EXJADE [Suspect]
     Indication: IRON OVERLOAD
     Dosage: 1500 MG, QD
     Dates: start: 20110404, end: 20110727
  4. VITAMIN D [Concomitant]
     Dosage: 1000 MG, QD
     Route: 048
     Dates: start: 20100413
  5. CYMBALTA [Concomitant]
     Dosage: 60 MG, QD
     Dates: start: 20101022
  6. REVLIMID [Concomitant]
     Indication: MYELODYSPLASTIC SYNDROME
     Dosage: 5 MG, QD
     Route: 048
     Dates: start: 20090704, end: 20110727
  7. METHYLPHENIDATE [Concomitant]
     Dosage: 25 MG, QD
     Route: 048
     Dates: start: 20101022

REACTIONS (8)
  - NAUSEA [None]
  - DIARRHOEA [None]
  - FEBRILE NEUTROPENIA [None]
  - VISUAL IMPAIRMENT [None]
  - HYPERMETROPIA [None]
  - ANAEMIA [None]
  - THROMBOCYTOPENIA [None]
  - VISION BLURRED [None]
